FAERS Safety Report 4579605-3 (Version None)
Quarter: 2005Q1

REPORT INFORMATION
  Report Type: 
  Country: None (occurrence: None)
  Receive Date: 20050210
  Receipt Date: 20050210
  Transmission Date: 20050727
  Serious: No
  Sender: FDA-Public Use
  Company Number: None

PATIENT
  Sex: Female

DRUGS (3)
  1. LIPITOR [Suspect]
     Indication: HYPERCHOLESTEROLAEMIA
     Dosage: 1 PO Q DAY
     Route: 048
  2. PRAVACHOL [Suspect]
     Dosage: 1 PO Q DAY
     Route: 048
  3. TOPICAL MEDS [Concomitant]

REACTIONS (2)
  - RASH [None]
  - THERMAL BURN [None]
